FAERS Safety Report 22284066 (Version 1)
Quarter: 2023Q2

REPORT INFORMATION
  Report Type: Spontaneous
  Country: CO (occurrence: CO)
  Receive Date: 20230504
  Receipt Date: 20230504
  Transmission Date: 20230721
  Serious: Yes (Other)
  Sender: FDA-Public Use
  Company Number: CO-002147023-NVSC2023CO099340

PATIENT
  Sex: Female

DRUGS (2)
  1. EVEROLIMUS [Suspect]
     Active Substance: EVEROLIMUS
     Indication: Rhabdomyoma
     Dosage: 0.1 MG, QD, STARTED ON THE THIRD DAY OF LIFE.
     Route: 065
  2. EVEROLIMUS [Suspect]
     Active Substance: EVEROLIMUS
     Dosage: 0.2 MG, QD (SECOND CYCLE)
     Route: 065

REACTIONS (6)
  - Rebound effect [Unknown]
  - Anaemia [Unknown]
  - Hypercholesterolaemia [Unknown]
  - Hypertriglyceridaemia [Unknown]
  - Product use issue [Unknown]
  - Product use in unapproved indication [Unknown]
